FAERS Safety Report 5519375-5 (Version None)
Quarter: 2007Q4

REPORT INFORMATION
  Report Type: 
  Country: None (occurrence: None)
  Receive Date: 20071116
  Receipt Date: 20071102
  Transmission Date: 20080405
  Serious: Yes (Hospitalization)
  Sender: FDA-Public Use
  Company Number: JP-GENENTECH-251299

PATIENT
  Age: 57 Year
  Sex: Female

DRUGS (1)
  1. HERCEPTIN [Suspect]
     Indication: BREAST CANCER
     Dosage: UNK, 1/WEEK
     Route: 042
     Dates: start: 20070815

REACTIONS (1)
  - POLYMYOSITIS [None]
